FAERS Safety Report 5781359-X (Version None)
Quarter: 2008Q2

REPORT INFORMATION
  Report Type: 
  Country: None (occurrence: None)
  Receive Date: 20080623
  Receipt Date: 20080617
  Transmission Date: 20081010
  Serious: Yes (Disabling)
  Sender: FDA-Public Use
  Company Number: GB-BRISTOL-MYERS SQUIBB COMPANY-14232276

PATIENT
  Age: 47 Year
  Sex: Male
  Weight: 75 kg

DRUGS (2)
  1. ABILIFY [Suspect]
     Indication: DELUSIONAL DISORDER, PERSECUTORY TYPE
     Route: 048
     Dates: start: 20080410, end: 20080428
  2. DIAZEPAM [Concomitant]
     Indication: AGITATION
     Route: 048
     Dates: start: 20080418

REACTIONS (8)
  - ANXIETY [None]
  - BALANCE DISORDER [None]
  - BRADYKINESIA [None]
  - MUSCULOSKELETAL STIFFNESS [None]
  - SALIVARY HYPERSECRETION [None]
  - SLUGGISHNESS [None]
  - TREMOR [None]
  - URINARY HESITATION [None]
